FAERS Safety Report 16273320 (Version 1)
Quarter: 2019Q2

REPORT INFORMATION
  Report Type: Spontaneous
  Country: US (occurrence: US)
  Receive Date: 20190506
  Receipt Date: 20190506
  Transmission Date: 20190711
  Serious: Yes (Other)
  Sender: FDA-Public Use
  Company Number: US-UCBSA-2019017171

PATIENT
  Sex: Male

DRUGS (4)
  1. CIMZIA [Suspect]
     Active Substance: CERTOLIZUMAB PEGOL
     Indication: PRODUCT USED FOR UNKNOWN INDICATION
     Dosage: UNK
  2. AUGMENTIN [Concomitant]
     Active Substance: AMOXICILLIN\CLAVULANATE POTASSIUM
  3. HUMIRA [Concomitant]
     Active Substance: ADALIMUMAB
     Indication: GASTROINTESTINAL INFECTION
     Dosage: UNK
     Dates: start: 2010
  4. HUMIRA [Concomitant]
     Active Substance: ADALIMUMAB
     Dosage: 40 MILLIGRAM
     Route: 058
     Dates: start: 201903

REACTIONS (4)
  - Diarrhoea haemorrhagic [Recovering/Resolving]
  - Inhibitory drug interaction [Recovered/Resolved]
  - Gastrointestinal infection [Recovering/Resolving]
  - Weight decreased [Not Recovered/Not Resolved]
